FAERS Safety Report 6465922-9 (Version None)
Quarter: 2009Q4

REPORT INFORMATION
  Report Type: 
  Country: None (occurrence: None)
  Receive Date: 20091202
  Receipt Date: 20091120
  Transmission Date: 20100525
  Serious: Yes (Hospitalization)
  Sender: FDA-Public Use
  Company Number: US-BIOGENIDEC-2009BI038390

PATIENT
  Age: 44 Year
  Sex: Female

DRUGS (2)
  1. TYSABRI [Suspect]
     Indication: MULTIPLE SCLEROSIS
     Route: 042
     Dates: start: 20080318
  2. BOTOX [Concomitant]
     Indication: FALL

REACTIONS (6)
  - BRONCHITIS [None]
  - FATIGUE [None]
  - IMMUNE SYSTEM DISORDER [None]
  - NERVE COMPRESSION [None]
  - PAIN IN EXTREMITY [None]
  - PERONEAL NERVE PALSY [None]
